FAERS Safety Report 8851360 (Version 2)
Quarter: 2012Q4

REPORT INFORMATION
  Report Type: 
  Country: US (occurrence: US)
  Receive Date: 20121022
  Receipt Date: 20121115
  Transmission Date: 20130627
  Serious: Yes (Hospitalization, Other)
  Sender: FDA-Public Use
  Company Number: US-AMGEN-USASP2012065832

PATIENT
  Age: 82 Year
  Sex: Female
  Weight: 85.17 kg

DRUGS (17)
  1. ENBREL [Suspect]
     Indication: PSORIATIC ARTHROPATHY
     Dosage: 50 mg, qwk
     Route: 058
     Dates: start: 20040501, end: 20121004
  2. BOMECON [Concomitant]
     Dosage: UNK UNK, qd
     Route: 048
  3. VITAMIN D /00107901/ [Concomitant]
     Dosage: UNK
     Route: 048
  4. SPIRIVA [Concomitant]
     Dosage: qd inhaled
  5. VITAMIN B 12 [Concomitant]
     Dosage: UNK UNK, qd
     Route: 048
  6. VITAMIN E                          /00110501/ [Concomitant]
     Dosage: UNK UNK, qd
     Route: 048
  7. ASA [Concomitant]
     Dosage: 81 mg, qd
  8. AMLODIPIN                          /00972401/ [Concomitant]
     Dosage: 5 mg, qd
  9. WARFARIN [Concomitant]
     Dosage: UNK UNK, qd
  10. LIPITOR [Concomitant]
     Dosage: 40 mg, qd
  11. LIBRAX /00033301/ [Concomitant]
     Dosage: UNK UNK, qd
  12. ATENOLOL [Concomitant]
     Dosage: 50 mg, bid
  13. RELAFEN [Concomitant]
     Dosage: 500 mg, bid
  14. FOLIC ACID [Concomitant]
     Dosage: 1 mg, qd
  15. LOZOL [Concomitant]
     Dosage: 2.5 mg, qd
  16. KLOR-CON [Concomitant]
     Dosage: 20 UNK,  2 tabs qd
  17. FOSAMAX [Concomitant]
     Dosage: 70 mg, qwk

REACTIONS (3)
  - Ocular ischaemic syndrome [Not Recovered/Not Resolved]
  - Vision blurred [Not Recovered/Not Resolved]
  - IIIrd nerve paralysis [Unknown]
